FAERS Safety Report 9768433 (Version 2)
Quarter: 2014Q1

REPORT INFORMATION
  Report Type: Spontaneous
  Country: DE (occurrence: DE)
  Receive Date: 20131217
  Receipt Date: 20140217
  Transmission Date: 20141002
  Serious: Yes (Hospitalization, Other)
  Sender: FDA-Public Use
  Company Number: PHHY2013DE096207

PATIENT
  Age: 47 Year
  Sex: Female
  Weight: 60 kg

DRUGS (5)
  1. GLIVEC [Suspect]
     Indication: GASTROINTESTINAL STROMAL TUMOUR
     Dosage: 400 MG, PER DAY
     Route: 048
     Dates: start: 20070505, end: 2009
  2. NSAID^S [Concomitant]
     Dosage: UNK UKN, UNK
  3. OMEPRAZOLE [Concomitant]
     Dosage: 20 MG
  4. PERENTEROL//SACCHAROMYCES BOULARDII [Concomitant]
     Dosage: UNK UKN, UNK
  5. METIFEX [Concomitant]
     Dosage: UNK UKN, UNK

REACTIONS (4)
  - Furuncle [Recovering/Resolving]
  - Anal abscess [Recovering/Resolving]
  - Skin disorder [Recovering/Resolving]
  - Skin atrophy [Unknown]
